FAERS Safety Report 8710995 (Version 2)
Quarter: 2013Q4

REPORT INFORMATION
  Report Type: Spontaneous
  Country: US (occurrence: US)
  Receive Date: 20120807
  Receipt Date: 20131101
  Transmission Date: 20140711
  Serious: No
  Sender: FDA-Public Use
  Company Number: US-009507513-1208USA002258

PATIENT
  Sex: Female

DRUGS (4)
  1. CLARITIN [Suspect]
     Indication: PRODUCT USED FOR UNKNOWN INDICATION
     Dosage: UNK, UNKNOWN
     Route: 048
     Dates: start: 20120717
  2. CLARITIN [Suspect]
     Indication: MEDICAL OBSERVATION
  3. PENICILLIN (UNSPECIFIED) [Concomitant]
     Indication: PRODUCT USED FOR UNKNOWN INDICATION
     Dosage: UNK, UNKNOWN
  4. PENICILLIN (UNSPECIFIED) [Concomitant]
     Indication: MEDICAL OBSERVATION

REACTIONS (1)
  - Headache [Not Recovered/Not Resolved]
